FAERS Safety Report 9713937 (Version 2)
Quarter: 2015Q3

REPORT INFORMATION
  Report Type: Spontaneous
  Country: US (occurrence: US)
  Receive Date: 20131126
  Receipt Date: 20150803
  Transmission Date: 20151125
  Serious: No
  Sender: FDA-Public Use
  Company Number: US-GILEAD-2008-0018249

PATIENT
  Age: 77 Year
  Sex: Female
  Weight: 58.97 kg

DRUGS (10)
  1. TOPROL XL [Concomitant]
     Active Substance: METOPROLOL SUCCINATE
     Route: 048
  2. PLAVIX [Concomitant]
     Active Substance: CLOPIDOGREL BISULFATE
     Route: 048
  3. ADVAIR HFA [Concomitant]
     Active Substance: FLUTICASONE PROPIONATE\SALMETEROL XINAFOATE
     Route: 055
     Dates: start: 200709
  4. ADULT ASA [Concomitant]
     Route: 048
  5. DYNACIRC [Concomitant]
     Active Substance: ISRADIPINE
     Route: 048
  6. ALBUTEROL MDI [Concomitant]
     Dosage: AS NEEDED
     Route: 055
  7. ALTACE [Concomitant]
     Active Substance: RAMIPRIL
     Route: 048
  8. VYTORIN [Concomitant]
     Active Substance: EZETIMIBE\SIMVASTATIN
     Route: 048
  9. LETAIRIS [Suspect]
     Active Substance: AMBRISENTAN
     Indication: PULMONARY ARTERIAL HYPERTENSION
     Route: 048
     Dates: start: 20080722, end: 20080729
  10. LASIX [Concomitant]
     Active Substance: FUROSEMIDE
     Route: 001

REACTIONS (2)
  - Dyspnoea [Recovered/Resolved]
  - Dizziness [Recovered/Resolved]

NARRATIVE: CASE EVENT DATE: 20080729
